FAERS Safety Report 4839725-2 (Version None)
Quarter: 2005Q4

REPORT INFORMATION
  Report Type: 
  Country: None (occurrence: None)
  Receive Date: 20051129
  Receipt Date: 20050714
  Transmission Date: 20060501
  Serious: No
  Sender: FDA-Public Use
  Company Number: US-GLAXOSMITHKLINE-A0566240A

PATIENT
  Age: 54 Year
  Sex: Female

DRUGS (2)
  1. WELLBUTRIN SR [Suspect]
     Indication: DEPRESSION
     Dosage: 150MG PER DAY
     Route: 048
     Dates: start: 20000101, end: 20000501
  2. UNKNOWN MEDICATION [Concomitant]

REACTIONS (6)
  - BLISTER [None]
  - PRURITUS [None]
  - RASH [None]
  - RASH MACULAR [None]
  - SWELLING [None]
  - URTICARIA [None]
